FAERS Safety Report 10689357 (Version 2)
Quarter: 2015Q2

REPORT INFORMATION
  Report Type: Spontaneous
  Country: CA (occurrence: None)
  Receive Date: 20141231
  Receipt Date: 20150623
  Transmission Date: 20150821
  Serious: Yes (Other)
  Sender: FDA-Public Use
  Company Number: AMAG201400183

PATIENT
  Age: 73 Year
  Sex: Male
  Weight: 92 kg

DRUGS (15)
  1. SIMVASTATIN (SIMVASTATIN) [Concomitant]
     Active Substance: SIMVASTATIN
  2. VITAMIN B COMPLEX (CALCIUM PANTOLTHENATE, NICOTINAMIDE, PYRIDOXINE HYDROCHLORIDE, RIBOFLAVIN, THIAMINE HYDROCHLORIDE) [Concomitant]
  3. CALCITRIOL (CALCITRIOL) [Concomitant]
     Active Substance: CALCITRIOL
  4. FERAHEME [Suspect]
     Active Substance: FERUMOXYTOL NON-STOICHIOMETRIC MAGNETITE
     Indication: IRON DEFICIENCY
     Dosage: 510 MG, SINGLE, INTRAVENOUS
     Route: 042
     Dates: start: 20140515, end: 20140515
  5. LEVOTHYROXIN (LEVOTHYROXINE SODIUM) [Concomitant]
  6. VITAMIN E (TOCOPHERYL ACETATE) [Concomitant]
  7. FOLIC ACID (FOLIC ACID) [Concomitant]
     Active Substance: FOLIC ACID
  8. FUROSEMIDE (FUROSEMIDE) [Concomitant]
     Active Substance: FUROSEMIDE
  9. OMEPRAZOLE (OMEPRAZOLE) [Concomitant]
     Active Substance: OMEPRAZOLE
  10. CALCIUM CARBONATE. [Concomitant]
     Active Substance: CALCIUM CARBONATE
  11. BISOPROLOL (BISOPROLOL) [Concomitant]
     Active Substance: BISOPROLOL
  12. SEVELAMER (SEVELAMER) [Concomitant]
  13. ASPIRIN (ACETYLSALICYLIC ACID) [Concomitant]
     Active Substance: ASPIRIN
  14. CARVEDILOL (CARVEDILOL) [Concomitant]
     Active Substance: CARVEDILOL
  15. HUMULIN ZN (INDULIN HUMAN ZINC SUSPENSION) [Concomitant]

REACTIONS (4)
  - Flushing [None]
  - Vomiting [None]
  - Back pain [None]
  - Pruritus generalised [None]

NARRATIVE: CASE EVENT DATE: 20140515
